FAERS Safety Report 19829714 (Version 2)
Quarter: 2022Q3

REPORT INFORMATION
  Report Type: Spontaneous
  Country: US (occurrence: None)
  Receive Date: 20210915
  Receipt Date: 20220907
  Transmission Date: 20221027
  Serious: No
  Sender: FDA-Public Use
  Company Number: US-FARMAPROD-202009-1232

PATIENT
  Sex: Female

DRUGS (6)
  1. OXERVATE [Suspect]
     Active Substance: CENEGERMIN-BKBJ
     Indication: Ulcerative keratitis
     Route: 047
     Dates: start: 20200909
  2. OXERVATE [Suspect]
     Active Substance: CENEGERMIN-BKBJ
     Indication: Neurotrophic keratopathy
  3. OXERVATE [Suspect]
     Active Substance: CENEGERMIN-BKBJ
     Indication: Ulcerative keratitis
  4. MURO-128 [Concomitant]
  5. AZOPT [Concomitant]
     Active Substance: BRINZOLAMIDE
  6. TIMOLOL/LATANOPROST [Concomitant]

REACTIONS (8)
  - Dry eye [Unknown]
  - Lacrimation increased [Not Recovered/Not Resolved]
  - Photophobia [Unknown]
  - Eye pain [Unknown]
  - Foreign body sensation in eyes [Unknown]
  - Ocular hyperaemia [Not Recovered/Not Resolved]
  - Swelling of eyelid [Not Recovered/Not Resolved]
  - Drug ineffective [Unknown]
